FAERS Safety Report 7050509-X (Version None)
Quarter: 2010Q4

REPORT INFORMATION
  Report Type: 
  Country: None (occurrence: None)
  Receive Date: 20101018
  Receipt Date: 20101008
  Transmission Date: 20110411
  Serious: Yes (Hospitalization, Other)
  Sender: FDA-Public Use
  Company Number: US-BAXTER-2010BH025083

PATIENT
  Age: 54 Year
  Sex: Female
  Weight: 72 kg

DRUGS (2)
  1. DIANEAL [Suspect]
     Indication: PERITONEAL DIALYSIS
     Route: 033
     Dates: end: 20101004
  2. DIANEAL [Suspect]
     Indication: PERITONEAL DIALYSIS
     Route: 033

REACTIONS (6)
  - ABDOMINAL DISTENSION [None]
  - DISCOMFORT [None]
  - MEDICAL DEVICE COMPLICATION [None]
  - PERITONEAL CLOUDY EFFLUENT [None]
  - PERITONEAL DIALYSIS COMPLICATION [None]
  - PERITONEAL PERFORATION [None]
